FAERS Safety Report 11403188 (Version 1)
Quarter: 2015Q3

REPORT INFORMATION
  Report Type: Spontaneous
  Country: US (occurrence: None)
  Receive Date: 20150812
  Receipt Date: 20150812
  Transmission Date: 20151125
  Serious: No
  Sender: FDA-Public Use
  Company Number: 1506USA002118

PATIENT
  Sex: Female

DRUGS (1)
  1. RAGWITEK [Suspect]
     Active Substance: AMBROSIA ARTEMISIIFOLIA POLLEN
     Dosage: 12 AMB UNITS, ONCE DAILY, SUBLINGUAL
     Route: 060

REACTIONS (2)
  - Lip swelling [None]
  - Drug dose omission [None]
